FAERS Safety Report 9123922 (Version 1)
Quarter: 2013Q1

REPORT INFORMATION
  Report Type: Spontaneous
  Country: RU (occurrence: RU)
  Receive Date: 20130227
  Receipt Date: 20130227
  Transmission Date: 20140127
  Serious: Yes (Other)
  Sender: FDA-Public Use
  Company Number: RU-JNJFOC-20130212933

PATIENT
  Age: 14 Year
  Sex: Female

DRUGS (1)
  1. INFLIXIMAB, RECOMBINANT [Suspect]
     Indication: JUVENILE IDIOPATHIC ARTHRITIS
     Route: 042

REACTIONS (1)
  - Infusion related reaction [Unknown]
